FAERS Safety Report 11253526 (Version 1)
Quarter: 2015Q3

REPORT INFORMATION
  Report Type: Spontaneous
  Country: GB (occurrence: None)
  Receive Date: 20150707
  Receipt Date: 20150707
  Transmission Date: 20151125
  Serious: Yes (Other)
  Sender: FDA-Public Use
  Company Number: 2015-11675

PATIENT
  Age: 82 Year
  Sex: Female
  Weight: 88.9 kg

DRUGS (3)
  1. ADALAT LA (NIFEDIPINE) [Concomitant]
  2. EYLEA [Suspect]
     Active Substance: AFLIBERCEPT
     Indication: PRODUCT USED FOR UNKNOWN INDICATION
     Route: 051
     Dates: start: 20150314, end: 20150606
  3. OMEPRAZOLE. [Concomitant]
     Active Substance: OMEPRAZOLE

REACTIONS (4)
  - Pruritus [None]
  - Scab [None]
  - Swelling [None]
  - Crying [None]

NARRATIVE: CASE EVENT DATE: 20150417
